FAERS Safety Report 19866368 (Version 6)
Quarter: 2025Q1

REPORT INFORMATION
  Report Type: Report from Study
  Country: CA (occurrence: CA)
  Receive Date: 20210921
  Receipt Date: 20250115
  Transmission Date: 20250409
  Serious: Yes (Other)
  Sender: TAKEDA
  Company Number: CA-TAKEDA-2021TUS049412

PATIENT
  Age: 73 Year
  Sex: Female

DRUGS (11)
  1. VEDOLIZUMAB [Suspect]
     Active Substance: VEDOLIZUMAB
     Indication: Crohn^s disease
  2. VEDOLIZUMAB [Suspect]
     Active Substance: VEDOLIZUMAB
  3. VEDOLIZUMAB [Suspect]
     Active Substance: VEDOLIZUMAB
     Dosage: 300 MILLIGRAM, Q4WEEKS
     Dates: start: 20211015
  4. VEDOLIZUMAB [Suspect]
     Active Substance: VEDOLIZUMAB
     Dosage: 300 MILLIGRAM, Q4WEEKS
     Dates: end: 20241217
  5. ZOPICLONE [Concomitant]
     Active Substance: ZOPICLONE
  6. VAGIFEM [Concomitant]
     Active Substance: ESTRADIOL
  7. PENTASA [Concomitant]
     Active Substance: MESALAMINE
  8. ENTOCORT [Concomitant]
     Active Substance: BUDESONIDE
  9. Aza [Concomitant]
  10. CANDESARTAN [Concomitant]
     Active Substance: CANDESARTAN
  11. LATANOPROST [Concomitant]
     Active Substance: LATANOPROST

REACTIONS (6)
  - Crohn^s disease [Unknown]
  - Blood iron decreased [Unknown]
  - Weight decreased [Unknown]
  - Epigastric discomfort [Unknown]
  - Off label use [Unknown]
  - Abdominal distension [Recovering/Resolving]

NARRATIVE: CASE EVENT DATE: 20211015
